FAERS Safety Report 12146600 (Version 1)
Quarter: 2016Q1

REPORT INFORMATION
  Report Type: Spontaneous
  Country: US (occurrence: US)
  Receive Date: 20160304
  Receipt Date: 20160304
  Transmission Date: 20160526
  Serious: Yes (Other)
  Sender: FDA-Public Use
  Company Number: US-MYLANLABS-2016M1009228

PATIENT

DRUGS (6)
  1. FLUOROURACIL. [Suspect]
     Active Substance: FLUOROURACIL
     Dosage: 12 CYCLES OF 2400 MG/M2 OVER 46 HOURS
     Route: 041
     Dates: start: 20140128
  2. FOLINIC ACID [Suspect]
     Active Substance: LEUCOVORIN
     Indication: PANCREATIC CARCINOMA METASTATIC
     Dosage: 12 CYCLES OF 350 MG
     Route: 065
     Dates: start: 20140128
  3. FLUOROURACIL. [Suspect]
     Active Substance: FLUOROURACIL
     Indication: PANCREATIC CARCINOMA METASTATIC
     Dosage: 12 CYCLES OF 400 MG/M2
     Route: 065
     Dates: start: 20140128
  4. OXALIPLATIN. [Suspect]
     Active Substance: OXALIPLATIN
     Indication: PANCREATIC CARCINOMA METASTATIC
     Dosage: 12 CYCLES OF 85 MG/M2
     Route: 065
     Dates: start: 20140128
  5. IRINOTECAN [Suspect]
     Active Substance: IRINOTECAN
     Indication: PANCREATIC CARCINOMA METASTATIC
     Dosage: 12 CYCLES OF 180 MG/M2
     Route: 065
     Dates: start: 20140128
  6. CAPECITABINE. [Suspect]
     Active Substance: CAPECITABINE
     Indication: PANCREATIC CARCINOMA METASTATIC
     Route: 065

REACTIONS (7)
  - Transaminases increased [Unknown]
  - Peripheral sensory neuropathy [Unknown]
  - Thrombocytopenia [Unknown]
  - Fatigue [Unknown]
  - Seizure [Unknown]
  - Dry mouth [Unknown]
  - Alopecia [Unknown]
